FAERS Safety Report 6212222-8 (Version None)
Quarter: 2009Q2

REPORT INFORMATION
  Report Type: 
  Country: None (occurrence: None)
  Receive Date: 20090602
  Receipt Date: 20090525
  Transmission Date: 20091009
  Serious: Yes (Other)
  Sender: FDA-Public Use
  Company Number: MX-ASTRAZENECA-2009UW13744

PATIENT
  Age: 67 Year
  Sex: Female
  Weight: 60 kg

DRUGS (6)
  1. CRESTOR [Suspect]
     Indication: HYPERCHOLESTEROLAEMIA
     Route: 048
  2. ONDANSETRON [Concomitant]
     Indication: DIZZINESS
     Dosage: AT ENTRANCE TO THE SURGERY
     Route: 042
  3. ONDANSETRON [Concomitant]
     Indication: PREMEDICATION
     Dosage: AT ENTRANCE TO THE SURGERY
     Route: 042
  4. NIFEDIPINE [Concomitant]
     Indication: HYPERTENSION
     Dosage: TWO MINUTES AFTER ONDANSETRON ADMINISTRATION
     Route: 060
  5. CLOROPIRAMINA [Concomitant]
     Indication: ANAPHYLACTIC SHOCK
     Dosage: TWO MINUTES AFTER ONDANSETRON ADMINISTRATION
     Route: 042
  6. HIDROCORTISONE [Concomitant]
     Indication: ANAPHYLACTIC SHOCK
     Dosage: TWO MINUTES AFTER ONDANSETRON ADMINISTRATION
     Route: 042

REACTIONS (4)
  - BLOOD PRESSURE INCREASED [None]
  - HEART RATE INCREASED [None]
  - MUSCLE SPASMS [None]
  - RESPIRATORY DEPRESSION [None]
